FAERS Safety Report 5752776-9 (Version None)
Quarter: 2008Q2

REPORT INFORMATION
  Report Type: 
  Country: None (occurrence: None)
  Receive Date: 20080527
  Receipt Date: 20080527
  Transmission Date: 20081010
  Serious: No
  Sender: FDA-Public Use
  Company Number: None

PATIENT

DRUGS (1)
  1. CREST PROHEALTH ANTIPLAQUE ORAL RINSE [Suspect]
     Dates: start: 20071201, end: 20080506

REACTIONS (1)
  - TOOTH DISCOLOURATION [None]
